FAERS Safety Report 25061548 (Version 2)
Quarter: 2025Q1

REPORT INFORMATION
  Report Type: Report from Study
  Country: KR (occurrence: KR)
  Receive Date: 20250311
  Receipt Date: 20250319
  Transmission Date: 20250408
  Serious: Yes (Other)
  Sender: TAKEDA
  Company Number: KR-TAKEDA-2022TUS048556

PATIENT
  Sex: Male

DRUGS (13)
  1. BRIGATINIB [Suspect]
     Active Substance: BRIGATINIB
     Indication: Non-small cell lung cancer
     Dosage: 90 MILLIGRAM, QD
     Dates: start: 20220401, end: 20220406
  2. BRIGATINIB [Suspect]
     Active Substance: BRIGATINIB
     Dosage: 180 MILLIGRAM, QD
     Dates: start: 20220407
  3. BRIGATINIB [Suspect]
     Active Substance: BRIGATINIB
     Dosage: 120 MILLIGRAM, QD
     Dates: start: 20231226
  4. CYCLOSERINE [Concomitant]
     Active Substance: CYCLOSERINE
     Indication: Tuberculosis
     Dosage: 250 MILLIGRAM, BID
     Dates: start: 20220328
  5. COUGH SYRUP [Concomitant]
     Active Substance: DEXTROMETHORPHAN HYDROBROMIDE\GUAIFENESIN
     Indication: Cough
     Dosage: 20 MILLILITER, TID
     Dates: start: 20220328, end: 20220531
  6. Moveloxin [Concomitant]
     Indication: Tuberculosis
     Dosage: 400 MILLIGRAM, QD
     Dates: start: 20220328, end: 20220721
  7. Prothionamide gju [Concomitant]
     Indication: Tuberculosis
     Dosage: 125 MILLIGRAM, TID
     Dates: start: 20220328, end: 20220827
  8. PYRAZINAMIDE [Concomitant]
     Active Substance: PYRAZINAMIDE
     Indication: Tuberculosis
     Dosage: 500 MILLIGRAM, TID
     Dates: start: 20220328, end: 20220721
  9. PYRIDOXINE HYDROCHLORIDE [Concomitant]
     Active Substance: PYRIDOXINE HYDROCHLORIDE
     Indication: Vitamin B complex deficiency
     Dosage: 50 MILLIGRAM, BID
     Dates: start: 20220328, end: 20220721
  10. XARELTO [Concomitant]
     Active Substance: RIVAROXABAN
     Indication: Stasis dermatitis
     Dosage: 20 MILLIGRAM, QD
     Dates: start: 20220405, end: 20221012
  11. ENOXAPARIN SODIUM [Concomitant]
     Active Substance: ENOXAPARIN SODIUM
     Indication: Thrombosis
     Dates: start: 20220401, end: 20220404
  12. Furix [Concomitant]
     Indication: Generalised oedema
     Dates: start: 20220401, end: 20220408
  13. PANTOPRAZOLE SODIUM [Concomitant]
     Active Substance: PANTOPRAZOLE SODIUM
     Indication: Prophylaxis
     Dates: start: 20220411, end: 20221013

REACTIONS (1)
  - Tuberculosis [Recovered/Resolved]

NARRATIVE: CASE EVENT DATE: 20220429
